FAERS Safety Report 15460257 (Version 2)
Quarter: 2020Q1

REPORT INFORMATION
  Report Type: Spontaneous
  Country: JP (occurrence: JP)
  Receive Date: 20181003
  Receipt Date: 20200313
  Transmission Date: 20200409
  Serious: Yes (Hospitalization, Other)
  Sender: FDA-Public Use
  Company Number: JP-009507513-1703JPN001616J

PATIENT
  Age: 53 Year
  Sex: Male
  Weight: 94 kg

DRUGS (19)
  1. SOL MELCORT [Suspect]
     Active Substance: METHYLPREDNISOLONE
     Dosage: 80 MG, QD
     Route: 042
     Dates: start: 20171016, end: 20171029
  2. CYTOTEC [Concomitant]
     Active Substance: MISOPROSTOL
     Indication: NON-SMALL CELL LUNG CANCER
     Dosage: 100 MICROGRAM, UNK
     Route: 048
  3. SOL MELCORT [Suspect]
     Active Substance: METHYLPREDNISOLONE
     Dosage: 80 MILLIGRAM, QD
     Route: 042
     Dates: start: 20170710, end: 20170716
  4. SOL MELCORT [Suspect]
     Active Substance: METHYLPREDNISOLONE
     Dosage: 60 MG, QD
     Route: 042
     Dates: start: 20171030, end: 20171112
  5. VALPROATE SODIUM. [Concomitant]
     Active Substance: VALPROATE SODIUM
     Indication: NON-SMALL CELL LUNG CANCER
     Dosage: 200 MG, BID
     Route: 048
  6. SOL MELCORT [Suspect]
     Active Substance: METHYLPREDNISOLONE
     Dosage: 100 MG, QD
     Route: 042
     Dates: start: 20171002, end: 20171015
  7. MS TWICELON [Concomitant]
     Indication: NON-SMALL CELL LUNG CANCER
     Dosage: 30 MG, BID
     Route: 048
  8. MAGMITT [Concomitant]
     Active Substance: MAGNESIUM OXIDE
     Dosage: 330 MG, TID
     Route: 048
  9. KAYEXALATE [Concomitant]
     Active Substance: SODIUM POLYSTYRENE SULFONATE
     Indication: HYPERKALAEMIA
     Dosage: 10 G, BID
     Route: 048
  10. NAIXAN [Concomitant]
     Active Substance: NAPROXEN SODIUM
     Indication: NON-SMALL CELL LUNG CANCER
     Dosage: 200 MG, TID
     Route: 048
  11. AMBROXOL HYDROCHLORIDE [Concomitant]
     Active Substance: AMBROXOL HYDROCHLORIDE
     Indication: NON-SMALL CELL LUNG CANCER
     Dosage: 15 MG, TID
     Route: 048
  12. FEBURIC [Concomitant]
     Active Substance: FEBUXOSTAT
     Dosage: 10 MG, QD
     Route: 048
  13. KEYTRUDA [Suspect]
     Active Substance: PEMBROLIZUMAB
     Indication: NON-SMALL CELL LUNG CANCER
     Dosage: 200 MG, Q3W
     Route: 041
     Dates: start: 20170314, end: 20170411
  14. KEYTRUDA [Suspect]
     Active Substance: PEMBROLIZUMAB
     Dosage: 200 MG, Q3W
     Route: 041
     Dates: start: 20170516, end: 20170613
  15. SOL MELCORT [Suspect]
     Active Substance: METHYLPREDNISOLONE
     Indication: COLITIS
     Dosage: 100 MG, QD
     Route: 042
     Dates: start: 20170703, end: 20170709
  16. SOL MELCORT [Suspect]
     Active Substance: METHYLPREDNISOLONE
     Dosage: 60 MILLIGRAM, QD
     Route: 042
     Dates: start: 20170717, end: 20170723
  17. SOL MELCORT [Suspect]
     Active Substance: METHYLPREDNISOLONE
     Dosage: 40 MILLIGRAM, QD
     Route: 042
     Dates: start: 20170724, end: 20170729
  18. SOL MELCORT [Suspect]
     Active Substance: METHYLPREDNISOLONE
     Dosage: 40 MILLIGRAM, QD
     Route: 042
     Dates: start: 20171113, end: 20171126
  19. NEXIUM [Concomitant]
     Active Substance: ESOMEPRAZOLE MAGNESIUM
     Indication: PROPHYLAXIS
     Dosage: 20 MG, QD
     Route: 048

REACTIONS (5)
  - Respiratory tract infection [Recovered/Resolved]
  - Nasopharyngitis [Recovered/Resolved]
  - Oesophageal candidiasis [Recovered/Resolved]
  - Colitis [Recovering/Resolving]
  - Pyrexia [Recovered/Resolved]

NARRATIVE: CASE EVENT DATE: 20170314
